FAERS Safety Report 25037702 (Version 1)
Quarter: 2025Q1

REPORT INFORMATION
  Report Type: Spontaneous
  Country: GR (occurrence: GR)
  Receive Date: 20250304
  Receipt Date: 20250304
  Transmission Date: 20250408
  Serious: Yes (Other)
  Sender: MYLAN
  Company Number: GR-SANDOZ-SDZ2025GR008863

PATIENT
  Age: 57 Year
  Sex: Male

DRUGS (13)
  1. TACROLIMUS [Suspect]
     Active Substance: TACROLIMUS
     Indication: Immunosuppressant drug therapy
  2. MYCOPHENOLATE MOFETIL [Suspect]
     Active Substance: MYCOPHENOLATE MOFETIL
     Indication: Immunosuppressant drug therapy
     Dosage: 500 MILLIGRAM, BID
  3. METHYLPREDNISOLONE [Suspect]
     Active Substance: METHYLPREDNISOLONE
     Indication: Immunosuppressant drug therapy
     Dosage: 4 MILLIGRAM, QD
  4. EVEROLIMUS [Suspect]
     Active Substance: EVEROLIMUS
     Indication: Immunosuppressant drug therapy
  5. EVEROLIMUS [Suspect]
     Active Substance: EVEROLIMUS
  6. DARBEPOETIN ALFA [Concomitant]
     Active Substance: DARBEPOETIN ALFA
     Indication: Immunosuppressant drug therapy
     Dosage: 20 MICROGRAM, QW
  7. DARBEPOETIN ALFA [Concomitant]
     Active Substance: DARBEPOETIN ALFA
     Dosage: U20 TO 60 ?G/WEEKNK
  8. IRBESARTAN [Concomitant]
     Active Substance: IRBESARTAN
     Indication: Hypertension
     Dosage: 150 MILLIGRAM, QD
  9. AMLODIPINE [Concomitant]
     Active Substance: AMLODIPINE BESYLATE
     Indication: Hypertension
     Dosage: 5 MILLIGRAM, BID
  10. MOXONIDINE [Concomitant]
     Active Substance: MOXONIDINE
     Indication: Hypertension
     Dosage: 0.3 MILLIGRAM, QD
  11. ATORVASTATIN [Concomitant]
     Active Substance: ATORVASTATIN
     Indication: Unevaluable therapy
     Dosage: 20 MILLIGRAM, QD
  12. LINAGLIPTIN [Concomitant]
     Active Substance: LINAGLIPTIN
     Indication: Blood glucose increased
     Dosage: 5 MILLIGRAM, QD
  13. DENOSUMAB [Concomitant]
     Active Substance: DENOSUMAB
     Indication: Osteoporosis

REACTIONS (4)
  - Proteinuria [Unknown]
  - Infection [Unknown]
  - Parvovirus B19 infection [Unknown]
  - Anaemia [Unknown]
